FAERS Safety Report 5234169-6 (Version None)
Quarter: 2007Q1

REPORT INFORMATION
  Report Type: 
  Country: None (occurrence: None)
  Receive Date: 20070205
  Receipt Date: 20070124
  Transmission Date: 20070707
  Serious: Yes (Hospitalization)
  Sender: FDA-Public Use
  Company Number: THYM-11206

PATIENT
  Age: 71 Year
  Sex: Male
  Weight: 80.7 kg

DRUGS (9)
  1. THYMOGLOBULIN [Suspect]
     Indication: LIVER TRANSPLANT
     Dosage: 125 MG QD IV
     Route: 042
     Dates: start: 20060215, end: 20060217
  2. THYMOGLOBULIN [Suspect]
     Indication: LIVER TRANSPLANT
     Dosage: 125 MG QD IV
     Route: 042
     Dates: start: 20060221, end: 20060221
  3. CELLCEPT [Concomitant]
  4. PROGRAF [Concomitant]
  5. SYNTHROID [Concomitant]
  6. LANTUS [Concomitant]
  7. ZOLOFT [Concomitant]
  8. TOPROL-XL [Concomitant]
  9. NOVOLOG [Concomitant]

REACTIONS (7)
  - ASTHENIA [None]
  - BILE DUCT STENOSIS [None]
  - CHILLS [None]
  - CHOLANGITIS [None]
  - DIARRHOEA [None]
  - PSEUDOMONAL SEPSIS [None]
  - PYREXIA [None]
